FAERS Safety Report 21082471 (Version 1)
Quarter: 2022Q3

REPORT INFORMATION
  Report Type: Spontaneous
  Country: US (occurrence: None)
  Receive Date: 20220714
  Receipt Date: 20220714
  Transmission Date: 20221027
  Serious: No
  Sender: FDA-Public Use
  Company Number: None

PATIENT
  Age: 79 Year
  Sex: Male
  Weight: 86.18 kg

DRUGS (9)
  1. FUROSEMIDE [Concomitant]
     Active Substance: FUROSEMIDE
  2. METOPROLOL [Concomitant]
     Active Substance: METOPROLOL
  3. LUPRON [Concomitant]
     Active Substance: LEUPROLIDE ACETATE
  4. TAMSULOSIN [Concomitant]
     Active Substance: TAMSULOSIN
  5. FOLIC ACID [Concomitant]
  6. VITAMIN B6 [Concomitant]
     Active Substance: PYRIDOXINE HYDROCHLORIDE
  7. ELIQUIS [Concomitant]
     Active Substance: APIXABAN
  8. ATORVASTATIN [Concomitant]
     Active Substance: ATORVASTATIN
  9. ERLEADA [Suspect]
     Active Substance: APALUTAMIDE
     Indication: Prostate cancer
     Dates: start: 20220615

REACTIONS (3)
  - Full blood count decreased [None]
  - Anaemia [None]
  - Therapy interrupted [None]
